FAERS Safety Report 4294041-5 (Version None)
Quarter: 2004Q1

REPORT INFORMATION
  Report Type: 
  Country: None (occurrence: None)
  Receive Date: 20040211
  Receipt Date: 20040126
  Transmission Date: 20041129
  Serious: Yes (Other)
  Sender: FDA-Public Use
  Company Number: 234809

PATIENT
  Age: 11 Year
  Sex: Male

DRUGS (1)
  1. NORDITROPIN PENSET(SOMATROPIN) POWDER FOR INJECTION, 8 MG [Suspect]
     Indication: MULTIPLE EPIPHYSEAL DYSPLASIA
     Dosage: 2 IU, QD, SUBCUTANEOUS
     Route: 058
     Dates: start: 19950704, end: 19970722

REACTIONS (4)
  - ARTHRALGIA [None]
  - JOINT DISLOCATION [None]
  - SCOLIOSIS [None]
  - THERAPEUTIC RESPONSE DECREASED [None]
